FAERS Safety Report 4660858-8 (Version None)
Quarter: 2005Q2

REPORT INFORMATION
  Report Type: 
  Country: None (occurrence: None)
  Receive Date: 20050426
  Receipt Date: 20050216
  Transmission Date: 20051028
  Serious: Yes (Hospitalization)
  Sender: FDA-Public Use
  Company Number: 26213

PATIENT
  Age: 15 Year
  Sex: Female

DRUGS (1)
  1. ALDARA [Suspect]
     Indication: CONDYLOMA ACUMINATUM
     Dosage: (0.5 SACHET, 3 IN 1 WEEK(S)),TOPICAL
     Route: 061
     Dates: start: 20050207, end: 20050212

REACTIONS (6)
  - APPLICATION SITE ERYTHEMA [None]
  - APPLICATION SITE PAIN [None]
  - APPLICATION SITE VESICLES [None]
  - DYSURIA [None]
  - MALAISE [None]
  - PYREXIA [None]
